FAERS Safety Report 19957541 (Version 1)
Quarter: 2021Q4

REPORT INFORMATION
  Report Type: Spontaneous
  Country: TR (occurrence: TR)
  Receive Date: 20211014
  Receipt Date: 20211014
  Transmission Date: 20220304
  Serious: Yes (Other)
  Sender: FDA-Public Use
  Company Number: TR-EAGLE PHARMACEUTICALS, INC.-TR-2021EAG000207

PATIENT
  Age: 52 Year
  Sex: Female

DRUGS (4)
  1. PEMETREXED [Suspect]
     Active Substance: PEMETREXED
     Indication: Lung adenocarcinoma
     Dosage: UNK
     Route: 065
     Dates: start: 201811
  2. VITAMIN B12 [Concomitant]
     Active Substance: CYANOCOBALAMIN
     Indication: Supplementation therapy
     Dosage: 1000 MICROGRAMS, 7 DAYS BEFORE PEMETREXED, THEN PLANNED TO BE REPEATED EVERY 9 WEEKS
     Route: 030
     Dates: start: 2018
  3. FOLIC ACID [Concomitant]
     Active Substance: FOLIC ACID
     Indication: Supplementation therapy
     Dosage: 5 MG, QD, INITIATED ONE WEEK BEFORE PEMETREXED TREATMENT
     Route: 048
     Dates: start: 2018
  4. DEXAMETHASONE [Concomitant]
     Active Substance: DEXAMETHASONE
     Indication: Premedication
     Dosage: 4 MG, BID, DAY BEFORE, THE DAY OF, AND THE DAY AFTER PEMETREXED
     Route: 048
     Dates: start: 2018

REACTIONS (1)
  - Acute febrile neutrophilic dermatosis [Recovered/Resolved]

NARRATIVE: CASE EVENT DATE: 20180101
